FAERS Safety Report 17510959 (Version 3)
Quarter: 2021Q2

REPORT INFORMATION
  Report Type: Report from Study
  Country: US (occurrence: US)
  Receive Date: 20200306
  Receipt Date: 20210524
  Transmission Date: 20210716
  Serious: Yes (Other)
  Sender: FDA-Public Use
  Company Number: NVSC2020US063346

PATIENT
  Age: 50 Year
  Sex: Female
  Weight: 67.1 kg

DRUGS (4)
  1. BACLOFEN. [Concomitant]
     Active Substance: BACLOFEN
     Indication: PRODUCT USED FOR UNKNOWN INDICATION
     Dosage: 10 MG
     Route: 048
  2. MYSOLINE [Concomitant]
     Active Substance: PRIMIDONE
     Indication: PRODUCT USED FOR UNKNOWN INDICATION
     Dosage: 50 MG
     Route: 048
  3. EFFEXOR [Concomitant]
     Active Substance: VENLAFAXINE HYDROCHLORIDE
     Indication: PRODUCT USED FOR UNKNOWN INDICATION
     Dosage: 75 MG (EXTENDED RELEASE)
     Route: 048
  4. MAYZENT [Suspect]
     Active Substance: SIPONIMOD
     Indication: MULTIPLE SCLEROSIS
     Dosage: 2 MG, QD
     Route: 048
     Dates: start: 202002, end: 202102

REACTIONS (7)
  - Hypoaesthesia [Unknown]
  - Rash [Unknown]
  - Neuralgia [Unknown]
  - Blood pressure decreased [Unknown]
  - Multiple sclerosis relapse [Unknown]
  - Heart rate decreased [Unknown]
  - Herpes zoster reactivation [Recovering/Resolving]

NARRATIVE: CASE EVENT DATE: 20210208
